FAERS Safety Report 23971665 (Version 2)
Quarter: 2024Q2

REPORT INFORMATION
  Report Type: Spontaneous
  Country: US (occurrence: US)
  Receive Date: 20240613
  Receipt Date: 20240621
  Transmission Date: 20240716
  Serious: Yes (Death, Life-Threatening, Hospitalization, Disabling)
  Sender: FDA-Public Use
  Company Number: None

PATIENT
  Age: 18 Year
  Sex: Male
  Weight: 65.5 kg

DRUGS (12)
  1. QUETIAPINE [Suspect]
     Active Substance: QUETIAPINE
     Indication: Major depression
     Dosage: IMMEDIATE RELEASE
  2. QUETIAPINE [Suspect]
     Active Substance: QUETIAPINE
     Dosage: EXTENDED RELEASE /TITRATE TO 300 MG/D
  3. QUETIAPINE [Suspect]
     Active Substance: QUETIAPINE
     Dosage: EXTENDED RELEASE / TITRATE
  4. QUETIAPINE [Suspect]
     Active Substance: QUETIAPINE
     Dosage: EXTENDED RELEASE
  5. QUETIAPINE [Suspect]
     Active Substance: QUETIAPINE
     Dosage: EXTENDED
  6. QUETIAPINE [Suspect]
     Active Substance: QUETIAPINE
     Dosage: IMMEDIATE-RELEASE
  7. PAROXETINE [Suspect]
     Active Substance: PAROXETINE
     Indication: Major depression
  8. ALPRAZOLAM [Suspect]
     Active Substance: ALPRAZOLAM
     Indication: Panic attack
     Dosage: 0.25 MG, 1-2 TID PRN
  9. DIPHENHYDRAMINE [Suspect]
     Active Substance: DIPHENHYDRAMINE
     Indication: Pruritus
     Dosage: 25 MG/D PRN
  10. ACETAMINOPHEN [Concomitant]
     Active Substance: ACETAMINOPHEN
     Indication: Headache
  11. IBUPROFEN [Concomitant]
     Active Substance: IBUPROFEN
     Indication: Headache
  12. RIZATRIPTAN [Concomitant]
     Active Substance: RIZATRIPTAN
     Indication: Migraine

REACTIONS (10)
  - Sedation [Fatal]
  - Antipsychotic drug level increased [Fatal]
  - Pneumonitis aspiration [Fatal]
  - Brain injury [Fatal]
  - Blood pressure decreased [Fatal]
  - Oesophageal disorder [Fatal]
  - Areflexia [Fatal]
  - Vomiting [Fatal]
  - Reflux laryngitis [Fatal]
  - Brain hypoxia [Fatal]
